FAERS Safety Report 8804815 (Version 2)
Quarter: 2012Q4

REPORT INFORMATION
  Report Type: 
  Country: US (occurrence: US)
  Receive Date: 20120924
  Receipt Date: 20121022
  Transmission Date: 20130627
  Serious: Yes (Other)
  Sender: FDA-Public Use
  Company Number: US-JNJFOC-20100802529

PATIENT
  Age: 57 Year
  Sex: Male

DRUGS (2)
  1. LEVAQUIN [Suspect]
     Indication: POLLAKIURIA
     Route: 048
  2. LEVAQUIN [Suspect]
     Indication: PROSTATITIS
     Route: 048

REACTIONS (3)
  - Tendon rupture [Unknown]
  - Epicondylitis [Not Recovered/Not Resolved]
  - Tendonitis [Unknown]
